FAERS Safety Report 24282142 (Version 1)
Quarter: 2024Q3

REPORT INFORMATION
  Report Type: Report from Study
  Country: US (occurrence: US)
  Receive Date: 20240904
  Receipt Date: 20240904
  Transmission Date: 20241017
  Serious: Yes (Hospitalization)
  Sender: SUNOVION
  Company Number: US-SMPA-2024SPA001038AA

PATIENT

DRUGS (1)
  1. RETHYMIC [Suspect]
     Active Substance: ALLOGENIC THYMOCYTE-DEPLETED THYMUS TISSUE-AGDC
     Indication: DiGeorge^s syndrome
     Dosage: 19 SLICES, 10694 MM2/M2
     Route: 050
     Dates: start: 20240409, end: 20240409

REACTIONS (1)
  - Vomiting [Recovered/Resolved]

NARRATIVE: CASE EVENT DATE: 20240618
